FAERS Safety Report 6977964-5 (Version None)
Quarter: 2010Q3

REPORT INFORMATION
  Report Type: 
  Country: None (occurrence: None)
  Receive Date: 20100913
  Receipt Date: 20100901
  Transmission Date: 20110219
  Serious: Yes (Other)
  Sender: FDA-Public Use
  Company Number: US-PFIZER INC-2010101248

PATIENT
  Sex: Female
  Weight: 58.957 kg

DRUGS (2)
  1. CHANTIX [Suspect]
     Indication: SMOKING CESSATION THERAPY
     Dosage: 0.5 MG, DAILY
     Route: 048
     Dates: start: 20100730, end: 20100801
  2. ACETYLSALICYLIC ACID [Concomitant]
     Dosage: UNK

REACTIONS (16)
  - CARDIAC DISORDER [None]
  - CRYING [None]
  - FEELING ABNORMAL [None]
  - FEELING JITTERY [None]
  - GAIT DISTURBANCE [None]
  - HUNGER [None]
  - HYPOKINESIA [None]
  - IMPAIRED DRIVING ABILITY [None]
  - MALAISE [None]
  - NAUSEA [None]
  - NERVOUSNESS [None]
  - NIGHTMARE [None]
  - PARANOIA [None]
  - SPEECH DISORDER [None]
  - TREMOR [None]
  - VOMITING [None]
